FAERS Safety Report 20577786 (Version 2)
Quarter: 2022Q1

REPORT INFORMATION
  Report Type: Spontaneous
  Country: SG (occurrence: SG)
  Receive Date: 20220310
  Receipt Date: 20220324
  Transmission Date: 20220423
  Serious: Yes (Hospitalization, Other)
  Sender: FDA-Public Use
  Company Number: SG-TEVA-2022-SG-2014953

PATIENT
  Age: 52 Year
  Sex: Female

DRUGS (2)
  1. PREDNISOLONE [Suspect]
     Active Substance: PREDNISOLONE
     Indication: Immunosuppressant drug therapy
     Dosage: 5 MILLIGRAM DAILY; EVERY MORNING
     Route: 065
  2. CYCLOSPORINE [Suspect]
     Active Substance: CYCLOSPORINE
     Indication: Immunosuppressant drug therapy
     Dosage: 120 MILLIGRAM DAILY;
     Route: 065

REACTIONS (3)
  - Pseudomembranous colitis [Recovering/Resolving]
  - Cytomegalovirus colitis [Recovering/Resolving]
  - Nephropathy toxic [Unknown]
